FAERS Safety Report 4749208-6 (Version None)
Quarter: 2005Q3

REPORT INFORMATION
  Report Type: 
  Country: None (occurrence: None)
  Receive Date: 20050817
  Receipt Date: 20050804
  Transmission Date: 20060218
  Serious: Yes (Hospitalization)
  Sender: FDA-Public Use
  Company Number: 26600

PATIENT
  Age: 17 Year
  Sex: Female

DRUGS (2)
  1. ALDARA [Suspect]
     Indication: CONDYLOMA ACUMINATUM
     Dosage: (1 UNSPEC., 3 IN 1 WEEK (S)), TOPICAL
     Route: 061
     Dates: start: 20050211
  2. CILEST [Concomitant]

REACTIONS (5)
  - DRUG PRESCRIBING ERROR [None]
  - MEDICATION ERROR [None]
  - NECROSIS [None]
  - URINARY RETENTION [None]
  - VULVAL DISORDER [None]
